FAERS Safety Report 7024528-3 (Version None)
Quarter: 2010Q4

REPORT INFORMATION
  Report Type: 
  Country: None (occurrence: None)
  Receive Date: 20101001
  Receipt Date: 20100923
  Transmission Date: 20110411
  Serious: Yes (Hospitalization)
  Sender: FDA-Public Use
  Company Number: B0675937A

PATIENT
  Age: 60 Year
  Sex: Female

DRUGS (14)
  1. VALACYCLOVIR HYDROCHLORIDE [Suspect]
     Indication: PRODUCT USED FOR UNKNOWN INDICATION
     Route: 048
     Dates: end: 20100731
  2. BACTRIM [Suspect]
     Indication: PRODUCT USED FOR UNKNOWN INDICATION
     Dosage: 1UNIT TWICE PER DAY
     Route: 048
     Dates: end: 20100731
  3. TRIFLUCAN [Suspect]
     Indication: PRODUCT USED FOR UNKNOWN INDICATION
     Route: 048
  4. MABTHERA [Suspect]
     Route: 042
     Dates: start: 20100701, end: 20100702
  5. FLUDARABINE PHOSPHATE [Suspect]
     Route: 048
     Dates: start: 20100702, end: 20100706
  6. CYCLOPHOSPHAMIDE [Suspect]
     Route: 048
     Dates: start: 20100702, end: 20100706
  7. PAROXETINE HCL [Concomitant]
  8. DURAGESIC-100 [Concomitant]
  9. XANAX [Concomitant]
  10. MOPRAL [Concomitant]
  11. LEVOTHYROXINE SODIUM [Concomitant]
  12. SPIRIVA [Concomitant]
  13. AIROMIR [Concomitant]
  14. MORPHINE [Concomitant]

REACTIONS (12)
  - EOSINOPHILIA [None]
  - ERYTHEMA [None]
  - FACE OEDEMA [None]
  - HYPERSENSITIVITY [None]
  - OEDEMA PERIPHERAL [None]
  - PRURITUS [None]
  - PURPURA [None]
  - PYREXIA [None]
  - RASH MACULO-PAPULAR [None]
  - RASH MORBILLIFORM [None]
  - SKIN EXFOLIATION [None]
  - TOXIC SKIN ERUPTION [None]
